FAERS Safety Report 8286766-1 (Version None)
Quarter: 2012Q2

REPORT INFORMATION
  Report Type: 
  Country: None (occurrence: None)
  Receive Date: 20120411
  Receipt Date: 20120310
  Transmission Date: 20120825
  Serious: Yes (Other)
  Sender: FDA-Public Use
  Company Number: AUR-APL-2012-00671

PATIENT
  Age: 57 Year
  Sex: Male
  Weight: 99.7913 kg

DRUGS (2)
  1. SERTRALINE HYDROCHLORIDE [Suspect]
     Indication: DEPRESSION
     Dosage: (200 MG, 1 D),ORAL
     Route: 048
     Dates: start: 20110301
  2. ENBREL [Concomitant]

REACTIONS (6)
  - GASTRIC DISORDER [None]
  - PRODUCT SUBSTITUTION ISSUE [None]
  - DYSPEPSIA [None]
  - PRODUCT COATING ISSUE [None]
  - THROAT IRRITATION [None]
  - PRODUCT QUALITY ISSUE [None]
